FAERS Safety Report 4517942-9 (Version None)
Quarter: 2004Q4

REPORT INFORMATION
  Report Type: 
  Country: None (occurrence: None)
  Receive Date: 20041130
  Receipt Date: 20041118
  Transmission Date: 20050328
  Serious: Yes (Hospitalization)
  Sender: FDA-Public Use
  Company Number: B0357492A

PATIENT
  Sex: Male

DRUGS (1)
  1. NICODERM CQ [Suspect]
     Indication: EX-SMOKER
     Dosage: 21 MG PER DAY  TRANSDERMAL
     Route: 062
     Dates: start: 20041111, end: 20041111

REACTIONS (3)
  - EYE SWELLING [None]
  - RASH [None]
  - SWELLING FACE [None]
